FAERS Safety Report 7818632-7 (Version None)
Quarter: 2011Q4

REPORT INFORMATION
  Report Type: 
  Country: None (occurrence: None)
  Receive Date: 20111017
  Receipt Date: 20111006
  Transmission Date: 20120403
  Serious: Yes (Other)
  Sender: FDA-Public Use
  Company Number: US-ASTRAZENECA-2011SE54642

PATIENT
  Age: 61 Year
  Sex: Female

DRUGS (1)
  1. SYMBICORT [Suspect]
     Route: 055

REACTIONS (6)
  - BRONCHITIS [None]
  - COUGH [None]
  - HYPERTENSION [None]
  - ASTHMA [None]
  - DIABETES MELLITUS [None]
  - BREAST CANCER [None]
